FAERS Safety Report 22642550 (Version 1)
Quarter: 2023Q2

REPORT INFORMATION
  Report Type: Report from Study
  Country: US (occurrence: US)
  Receive Date: 20230627
  Receipt Date: 20230627
  Transmission Date: 20230722
  Serious: Yes (Other)
  Sender: FDA-Public Use
  Company Number: US-ABBVIE-5303813

PATIENT
  Sex: Female

DRUGS (2)
  1. UBRELVY [Suspect]
     Active Substance: UBROGEPANT
     Indication: Product used for unknown indication
     Dosage: FREQUENCY TEXT: TAKE 1 TABLET BY MOUTH DAILY AS NEEDED?DOSE STRENGTH : 100MG
     Route: 048
  2. QULIPTA [Suspect]
     Active Substance: ATOGEPANT
     Indication: Product used for unknown indication
     Dosage: DOSE STRENGTH : 60 MILLIGRAM?FREQUENCY TEXT: TAKE ONE TABLET BY MOUTH DAILY
     Route: 048

REACTIONS (4)
  - Systemic lupus erythematosus [Unknown]
  - Unevaluable event [Not Recovered/Not Resolved]
  - Headache [Unknown]
  - Migraine [Unknown]
